FAERS Safety Report 18585845 (Version 1)
Quarter: 2020Q4

REPORT INFORMATION
  Report Type: Spontaneous
  Country: IT (occurrence: IT)
  Receive Date: 20201207
  Receipt Date: 20201207
  Transmission Date: 20210114
  Serious: Yes (Hospitalization)
  Sender: FDA-Public Use
  Company Number: NVSC2020IT319286

PATIENT
  Age: 59 Year
  Sex: Male

DRUGS (2)
  1. TOLEP [Suspect]
     Active Substance: OXCARBAZEPINE
     Indication: SUICIDE ATTEMPT
     Dosage: 50 DF
     Route: 048
     Dates: start: 20201123, end: 20201123
  2. SERENASE [HALOPERIDOL] [Suspect]
     Active Substance: HALOPERIDOL
     Indication: SUICIDE ATTEMPT
     Dosage: 15 ML
     Route: 048
     Dates: start: 20201123, end: 20201123

REACTIONS (3)
  - Suicide attempt [Recovering/Resolving]
  - Tachycardia [Recovering/Resolving]
  - Sopor [Recovering/Resolving]

NARRATIVE: CASE EVENT DATE: 20201123
